FAERS Safety Report 8546591-0 (Version None)
Quarter: 2012Q3

REPORT INFORMATION
  Report Type: 
  Country: None (occurrence: None)
  Receive Date: 20120727
  Receipt Date: 20120306
  Transmission Date: 20120928
  Serious: No
  Sender: FDA-Public Use
  Company Number: US-ASTRAZENECA-2011SE78947

PATIENT
  Age: 58 Year
  Sex: Female
  Weight: 59 kg

DRUGS (30)
  1. SEROQUEL XR [Suspect]
     Indication: ANXIETY DISORDER
     Route: 048
     Dates: end: 20111201
  2. SEROQUEL XR [Suspect]
     Route: 048
  3. SEROQUEL XR [Suspect]
     Route: 048
  4. SEROQUEL XR [Suspect]
     Route: 048
  5. SEROQUEL XR [Suspect]
     Route: 048
     Dates: start: 20120101
  6. SEROQUEL XR [Suspect]
     Route: 048
  7. SEROQUEL XR [Suspect]
     Indication: INSOMNIA
     Route: 048
     Dates: end: 20111201
  8. SEROQUEL XR [Suspect]
     Route: 048
  9. MEDROXYPROGESTERONE [Concomitant]
  10. PERCOCET [Concomitant]
     Indication: PAIN
     Dosage: PRN
  11. ALPRAZOLAM [Concomitant]
     Dosage: 2 MG DAILY PRN
  12. SEROQUEL XR [Suspect]
     Route: 048
     Dates: start: 20120101
  13. SEROQUEL XR [Suspect]
     Route: 048
     Dates: start: 20120101
  14. SEROQUEL XR [Suspect]
     Route: 048
  15. XANIX [Concomitant]
  16. SEROQUEL XR [Suspect]
     Indication: SLEEP DISORDER
     Route: 048
     Dates: end: 20111201
  17. SEROQUEL XR [Suspect]
     Indication: BIPOLAR DISORDER
     Route: 048
     Dates: end: 20111201
  18. SEROQUEL XR [Suspect]
     Route: 048
     Dates: start: 20120101
  19. SEROQUEL XR [Suspect]
     Route: 048
  20. CYMBALTA [Concomitant]
  21. ESTRADIOL [Concomitant]
  22. SEROQUEL XR [Suspect]
     Indication: MOOD SWINGS
     Route: 048
     Dates: end: 20111201
  23. SEROQUEL XR [Suspect]
     Indication: PANIC ATTACK
     Route: 048
     Dates: end: 20111201
  24. SEROQUEL XR [Suspect]
     Route: 048
     Dates: start: 20120101
  25. SEROQUEL XR [Suspect]
     Route: 048
     Dates: start: 20120101
  26. SEROQUEL XR [Suspect]
     Indication: DEPRESSION
     Route: 048
     Dates: end: 20111201
  27. SEROQUEL XR [Suspect]
     Route: 048
     Dates: start: 20120101
  28. SEROQUEL XR [Suspect]
     Indication: MAJOR DEPRESSION
     Route: 048
     Dates: end: 20111201
  29. SEROQUEL XR [Suspect]
     Route: 048
     Dates: start: 20120101
  30. SEROQUEL XR [Suspect]
     Route: 048

REACTIONS (15)
  - OROPHARYNGEAL PAIN [None]
  - APHASIA [None]
  - GAIT DISTURBANCE [None]
  - DEPRESSION [None]
  - PANIC ATTACK [None]
  - DYSPNOEA [None]
  - DISTURBANCE IN ATTENTION [None]
  - OFF LABEL USE [None]
  - ARTHROPATHY [None]
  - SNORING [None]
  - SOMNOLENCE [None]
  - ACTIVITIES OF DAILY LIVING IMPAIRED [None]
  - PALPITATIONS [None]
  - PAIN [None]
  - ADVERSE EVENT [None]
